FAERS Safety Report 8076542-7 (Version None)
Quarter: 2012Q1

REPORT INFORMATION
  Report Type: 
  Country: None (occurrence: None)
  Receive Date: 20120125
  Receipt Date: 20120125
  Transmission Date: 20120608
  Serious: Yes (Death, Hospitalization)
  Sender: FDA-Public Use
  Company Number: None

PATIENT
  Sex: Male

DRUGS (3)
  1. TYVASO [Suspect]
     Dosage: AEROSOL INHALED DOSE THREE BREATHS
  2. FLOLAN [Suspect]
     Indication: HYPERTENSION
     Dosage: INJECTABLE INTRAVENOUS
     Route: 042
  3. FLOLAN [Suspect]
     Indication: CARDIOMYOPATHY
     Dosage: INJECTABLE INTRAVENOUS
     Route: 042

REACTIONS (6)
  - MALAISE [None]
  - CIRCULATORY COLLAPSE [None]
  - ACUTE RESPIRATORY DISTRESS SYNDROME [None]
  - MEDICATION ERROR [None]
  - DIFFUSE ALVEOLAR DAMAGE [None]
  - CARDIAC ARREST [None]
